FAERS Safety Report 18254371 (Version 2)
Quarter: 2020Q3

REPORT INFORMATION
  Report Type: Report from Study
  Country: FR (occurrence: FR)
  Receive Date: 20200910
  Receipt Date: 20200922
  Transmission Date: 20201103
  Serious: Yes (Hospitalization, Other)
  Sender: FDA-Public Use
  Company Number: NVSC2020FR245899

PATIENT
  Age: 51 Year
  Sex: Female
  Weight: 45 kg

DRUGS (4)
  1. ADOPORT [Suspect]
     Active Substance: TACROLIMUS
     Indication: RENAL TRANSPLANT
     Dosage: 7 MG, UNKNOWN
     Route: 065
     Dates: start: 20200630
  2. ADOPORT [Suspect]
     Active Substance: TACROLIMUS
     Dosage: 7.5 MG, UNKNOWN
     Route: 048
     Dates: start: 20200630
  3. ADOPORT [Suspect]
     Active Substance: TACROLIMUS
     Dosage: 6 MG, UNKNOWN
     Route: 048
     Dates: start: 20200630
  4. ADOPORT [Suspect]
     Active Substance: TACROLIMUS
     Dosage: 9 MG, UNKNOWN
     Route: 048
     Dates: start: 20200630

REACTIONS (13)
  - Acute kidney injury [Recovered/Resolved]
  - Rectal haemorrhage [Recovering/Resolving]
  - Metabolic acidosis [Recovering/Resolving]
  - Diarrhoea [Not Recovered/Not Resolved]
  - Diarrhoea [Recovered/Resolved]
  - Pyelonephritis acute [Recovered/Resolved]
  - Hypokalaemia [Recovered/Resolved]
  - Hyperglycaemia [Recovered/Resolved]
  - Haematoma [Recovered/Resolved]
  - Anaemia [Recovered/Resolved]
  - Transplant rejection [Recovering/Resolving]
  - Superinfection [Recovered/Resolved]
  - Folate deficiency [Recovered/Resolved]

NARRATIVE: CASE EVENT DATE: 20200630
